FAERS Safety Report 17273299 (Version 1)
Quarter: 2020Q1

REPORT INFORMATION
  Report Type: Report from Study
  Country: JP (occurrence: JP)
  Receive Date: 20200115
  Receipt Date: 20200115
  Transmission Date: 20200409
  Serious: Yes (Other)
  Sender: FDA-Public Use
  Company Number: JP-PBT-000190

PATIENT
  Age: 40 Year

DRUGS (2)
  1. TACROLIMUS. [Suspect]
     Active Substance: TACROLIMUS
     Indication: PROPHYLAXIS AGAINST GRAFT VERSUS HOST DISEASE
     Route: 065
  2. MYCOPHENOLATE MOFETIL. [Suspect]
     Active Substance: MYCOPHENOLATE MOFETIL
     Indication: PROPHYLAXIS AGAINST GRAFT VERSUS HOST DISEASE
     Dosage: 30 MG PER KG PER DAY ORALLY FROM DAY -1 TO DAY 35
     Route: 048

REACTIONS (7)
  - Chronic graft versus host disease in skin [Recovered/Resolved]
  - Drug ineffective [Unknown]
  - Acute graft versus host disease in skin [Recovered/Resolved]
  - Pneumonia [Recovered/Resolved]
  - Acute graft versus host disease in intestine [Recovered/Resolved]
  - Product use in unapproved indication [Unknown]
  - Mucormycosis [Recovered/Resolved]
